FAERS Safety Report 5989473-0 (Version None)
Quarter: 2008Q4

REPORT INFORMATION
  Report Type: 
  Country: None (occurrence: None)
  Receive Date: 20081205
  Receipt Date: 20081128
  Transmission Date: 20090506
  Serious: Yes (Hospitalization)
  Sender: FDA-Public Use
  Company Number: 2008SP022701

PATIENT
  Age: 60 Year
  Sex: Female
  Weight: 61.2356 kg

DRUGS (20)
  1. PEG-INTRON [Suspect]
     Indication: HEPATITIS C
     Dosage: 96 MCG;QW;SC
     Route: 058
     Dates: start: 20080815
  2. REBETOL [Suspect]
     Indication: HEPATITIS C
     Dosage: PO
     Route: 048
     Dates: start: 20080815
  3. COUMADIN [Concomitant]
  4. CITALOPRAM HYDROBROMIDE [Concomitant]
  5. BUPROPION HCL [Concomitant]
  6. ZOLPIDEM [Concomitant]
  7. LEVOTHROID [Concomitant]
  8. FLUTICASONE PROPIONATE [Concomitant]
  9. METFORMIN HCL [Concomitant]
  10. PROCHLORPERAZINE [Concomitant]
  11. MECLIZINE [Concomitant]
  12. HYDROCHLOROTHIAZIDE [Concomitant]
  13. ATENOLOL [Concomitant]
  14. LIDOCAINE [Concomitant]
  15. ACETAMINOPHEN AND HYDROCODONE BITARTRATE [Concomitant]
  16. WARFARIN SODIUM [Concomitant]
  17. ONDANSETRON [Concomitant]
  18. METOCHOPRAMIDE [Concomitant]
  19. LIDOCAINE 2% [Concomitant]
  20. LOVASTATIN [Concomitant]

REACTIONS (21)
  - BALANCE DISORDER [None]
  - BLOOD TRIGLYCERIDES INCREASED [None]
  - BURNING SENSATION [None]
  - CHEST DISCOMFORT [None]
  - DECREASED APPETITE [None]
  - DISTURBANCE IN ATTENTION [None]
  - DIZZINESS [None]
  - FALL [None]
  - FATIGUE [None]
  - GAIT DISTURBANCE [None]
  - MEMORY IMPAIRMENT [None]
  - MUSCLE ATROPHY [None]
  - MUSCULOSKELETAL PAIN [None]
  - MYALGIA [None]
  - NAUSEA [None]
  - PERIARTHRITIS [None]
  - PHOTOPHOBIA [None]
  - RETCHING [None]
  - TEARFULNESS [None]
  - VERTIGO [None]
  - WEIGHT DECREASED [None]
